FAERS Safety Report 15246815 (Version 1)
Quarter: 2018Q4

REPORT INFORMATION
  Report Type: Spontaneous
  Country: AR (occurrence: AR)
  Receive Date: 20180806
  Receipt Date: 20180806
  Transmission Date: 20190204
  Serious: Yes (Other)
  Sender: FDA-Public Use
  Company Number: PHHY2018AR064222

PATIENT
  Age: 89 Year
  Sex: Female

DRUGS (1)
  1. ALCON LAGRIMA II (ALC) (DEXTRAN 70\HYPROMELLOSE) [Suspect]
     Active Substance: DEXTRAN 70\HYPROMELLOSES
     Indication: DRY EYE
     Dosage: UNK, PRN
     Route: 047

REACTIONS (1)
  - Cataract [Recovered/Resolved]
